FAERS Safety Report 5255294-X (Version None)
Quarter: 2007Q1

REPORT INFORMATION
  Report Type: 
  Country: None (occurrence: None)
  Receive Date: 20070305
  Receipt Date: 20070301
  Transmission Date: 20070707
  Serious: Yes (Hospitalization)
  Sender: FDA-Public Use
  Company Number: 58297

PATIENT
  Age: 74 Year
  Sex: Male

DRUGS (2)
  1. REQUIP [Suspect]
     Indication: MEDICATION ERROR
     Dosage: .5MG AT NIGHT
     Route: 048
  2. RISPERDAL [Suspect]
     Dosage: .5MG AT NIGHT
     Route: 048

REACTIONS (2)
  - COMPRESSION FRACTURE [None]
  - MEDICATION ERROR [None]
